FAERS Safety Report 22235475 (Version 1)
Quarter: 2023Q2

REPORT INFORMATION
  Report Type: Spontaneous
  Country: FR (occurrence: FR)
  Receive Date: 20230420
  Receipt Date: 20230420
  Transmission Date: 20230721
  Serious: Yes (Hospitalization, Other)
  Sender: FDA-Public Use
  Company Number: FR-ROCHE-3319387

PATIENT
  Age: 55 Year
  Sex: Male

DRUGS (22)
  1. ACETAMINOPHEN [Suspect]
     Active Substance: ACETAMINOPHEN
     Indication: Pain
     Dosage: PDF-10219000?TABLET?ROA-20053000
     Route: 048
     Dates: start: 20230211
  2. CASPOFUNGIN [Suspect]
     Active Substance: CASPOFUNGIN
     Indication: Fungal infection
     Dosage: ROA-20045000
     Route: 042
     Dates: start: 20230126
  3. CIPROFLOXACIN [Suspect]
     Active Substance: CIPROFLOXACIN
     Indication: Bacterial infection
     Dosage: LAST DOSE : 08-FEB-2023
     Route: 065
     Dates: start: 20230203
  4. MORPHINE [Suspect]
     Active Substance: MORPHINE
     Indication: Pain
     Dosage: PDF-10219000 TABLET?ROA-20053000
     Route: 048
     Dates: start: 20230210, end: 20230218
  5. NALOXEGOL OXALATE [Suspect]
     Active Substance: NALOXEGOL OXALATE
     Indication: Constipation
     Dosage: PDF-10221000?FILM COATED TABLET?ROA-20053000
     Route: 048
     Dates: start: 20230211
  6. CILASTATIN SODIUM\IMIPENEM [Suspect]
     Active Substance: CILASTATIN SODIUM\IMIPENEM
     Indication: Bacterial infection
     Dosage: ROA-20045000?PFT-22120?LAST DOSE 08-FEB-2023?POWDER FOR INFUSION
     Route: 042
     Dates: start: 20230114
  7. VALACYCLOVIR HYDROCHLORIDE [Suspect]
     Active Substance: VALACYCLOVIR HYDROCHLORIDE
     Indication: Bacterial infection
     Dosage: ROA-20053000
     Route: 048
     Dates: start: 20230106
  8. CYCLOPHOSPHAMIDE [Suspect]
     Active Substance: CYCLOPHOSPHAMIDE
     Indication: Diffuse large B-cell lymphoma
     Route: 065
     Dates: start: 20221227
  9. DOXORUBICIN [Suspect]
     Active Substance: DOXORUBICIN
     Indication: Diffuse large B-cell lymphoma
     Route: 065
     Dates: start: 20221227
  10. LEUCOVORIN CALCIUM [Suspect]
     Active Substance: LEUCOVORIN CALCIUM
     Indication: Bacterial infection
     Dosage: ROA-20053000??PDF-10219000?TABLET UNCOATED
     Route: 048
     Dates: start: 20230102
  11. BACTRIM [Suspect]
     Active Substance: SULFAMETHOXAZOLE\TRIMETHOPRIM
     Indication: Bacterial infection
     Dosage: PDF-10219000?TABLET UNCOATED?ROA-20053000
     Route: 048
     Dates: start: 20230106, end: 20230303
  12. CEFTRIAXONE [Suspect]
     Active Substance: CEFTRIAXONE
     Indication: Bacterial infection
     Dosage: ROA-20053000
     Route: 048
     Dates: start: 20230209
  13. ACUPAN [Suspect]
     Active Substance: NEFOPAM HYDROCHLORIDE
     Indication: Pain
     Dosage: ONE AMPOULE EVERY 4 HOURS
     Route: 048
     Dates: start: 20230106, end: 20230302
  14. ALPRAZOLAM [Suspect]
     Active Substance: ALPRAZOLAM
     Indication: Anxiety
     Dosage: LAST DOSE 09-FEB-2023??PDF-10219000?TABLET UNCOATED??ROA-20053000
     Route: 048
     Dates: start: 20230106
  15. AMITRIPTYLINE HYDROCHLORIDE [Suspect]
     Active Substance: AMITRIPTYLINE HYDROCHLORIDE
     Indication: Pain
     Dosage: 1/12 MILLILITRE PER DAY?ROA-20053000
     Route: 048
     Dates: start: 20221210
  16. VINCRISTINE [Suspect]
     Active Substance: VINCRISTINE
     Indication: Diffuse large B-cell lymphoma
     Route: 065
     Dates: start: 20221227
  17. ARANESP [Suspect]
     Active Substance: DARBEPOETIN ALFA
     Indication: Anaemia
     Dosage: 300 MICROGRAM PER GRAM?ROA-20066000
     Route: 058
     Dates: start: 20230213
  18. DAPTOMYCIN [Suspect]
     Active Substance: DAPTOMYCIN
     Indication: Bacterial infection
     Dosage: ROA-20045000
     Route: 042
     Dates: start: 20230211, end: 20230306
  19. LOVENOX [Suspect]
     Active Substance: ENOXAPARIN SODIUM
     Indication: Constipation
     Dosage: 4000 INTERNATIONAL UNIT
     Route: 058
     Dates: start: 20230210
  20. METRONIDAZOLE [Suspect]
     Active Substance: METRONIDAZOLE
     Indication: Bacterial infection
     Dosage: ROA-20053000
     Route: 048
     Dates: start: 20230209, end: 20230209
  21. RITUXIMAB [Suspect]
     Active Substance: RITUXIMAB
     Indication: Diffuse large B-cell lymphoma
     Route: 065
     Dates: start: 20221227
  22. PANTOPRAZOLE [Suspect]
     Active Substance: PANTOPRAZOLE
     Indication: Constipation
     Dosage: ROA-20053000
     Route: 048
     Dates: start: 20230106

REACTIONS (1)
  - Agranulocytosis [Recovered/Resolved]
